FAERS Safety Report 10905366 (Version 1)
Quarter: 2015Q1

REPORT INFORMATION
  Report Type: Report from Study
  Country: BR (occurrence: BR)
  Receive Date: 20150311
  Receipt Date: 20150311
  Transmission Date: 20150721
  Serious: Yes (Death, Hospitalization, Other)
  Sender: FDA-Public Use
  Company Number: PHHY2015BR028629

PATIENT
  Age: 79 Year
  Sex: Male
  Weight: 75 kg

DRUGS (3)
  1. FORASEQ [Suspect]
     Active Substance: BUDESONIDE\FORMOTEROL FUMARATE
     Indication: SINUSITIS
     Dosage: 2 DF, IN THE MORNING AND IN THE AFTERNOON
     Route: 065
     Dates: start: 201408
  2. SPIRIVA [Suspect]
     Active Substance: TIOTROPIUM BROMIDE MONOHYDRATE
     Indication: PRODUCT USED FOR UNKNOWN INDICATION
     Dosage: UNK UNK, BID
     Route: 065
     Dates: start: 201408, end: 20141023
  3. FORASEQ [Suspect]
     Active Substance: BUDESONIDE\FORMOTEROL FUMARATE
     Dosage: 2 DF, IN THE MORNING AND IN THE AFTERNOON
     Route: 065
     Dates: end: 20141023

REACTIONS (7)
  - Lung neoplasm [Unknown]
  - Product use issue [Unknown]
  - Pneumonia [Unknown]
  - Sinusitis [Unknown]
  - Cerebellar tumour [Fatal]
  - Dizziness [Fatal]
  - Asthenia [Fatal]

NARRATIVE: CASE EVENT DATE: 20141023
